FAERS Safety Report 5936111-9 (Version None)
Quarter: 2008Q4

REPORT INFORMATION
  Report Type: 
  Country: None (occurrence: None)
  Receive Date: 20081030
  Receipt Date: 20081023
  Transmission Date: 20090506
  Serious: Yes (Hospitalization)
  Sender: FDA-Public Use
  Company Number: US-PFIZER INC-2008080141

PATIENT
  Sex: Female
  Weight: 78.5 kg

DRUGS (3)
  1. SU-011,248 [Suspect]
     Indication: BREAST CANCER
     Route: 048
     Dates: start: 20080710, end: 20080911
  2. PACLITAXEL [Suspect]
     Indication: BREAST CANCER
     Route: 042
     Dates: start: 20080710
  3. GLIMEPIRIDE [Concomitant]
     Indication: DIABETES MELLITUS
     Dates: start: 20080501

REACTIONS (5)
  - DEHYDRATION [None]
  - EJECTION FRACTION DECREASED [None]
  - FATIGUE [None]
  - MYOCARDIAL ISCHAEMIA [None]
  - URINARY TRACT INFECTION [None]
